FAERS Safety Report 13645395 (Version 2)
Quarter: 2017Q2

REPORT INFORMATION
  Report Type: Report from Study
  Country: None (occurrence: CH)
  Receive Date: 20170612
  Receipt Date: 20170628
  Transmission Date: 20170830
  Serious: Yes (Hospitalization)
  Sender: FDA-Public Use
  Company Number: CH-ABBVIE-17K-151-2003426-00

PATIENT
  Age: 72 Year
  Sex: Male

DRUGS (12)
  1. SIFROL ER 1.5 [Concomitant]
     Indication: PRODUCT USED FOR UNKNOWN INDICATION
  2. TRANSIPEG [Concomitant]
     Active Substance: POLYETHYLENE GLYCOL 3350
     Indication: PRODUCT USED FOR UNKNOWN INDICATION
  3. LITHIUM. [Concomitant]
     Active Substance: LITHIUM
     Indication: PRODUCT USED FOR UNKNOWN INDICATION
  4. CRESTOR [Concomitant]
     Active Substance: ROSUVASTATIN CALCIUM
     Indication: PRODUCT USED FOR UNKNOWN INDICATION
  5. FOLIC ACID. [Concomitant]
     Active Substance: FOLIC ACID
     Indication: PRODUCT USED FOR UNKNOWN INDICATION
  6. TEGRETOL [Concomitant]
     Active Substance: CARBAMAZEPINE
     Indication: PRODUCT USED FOR UNKNOWN INDICATION
  7. VALDOXAN [Concomitant]
     Active Substance: AGOMELATINE
     Indication: PRODUCT USED FOR UNKNOWN INDICATION
  8. MAGNESII ASPARTATIS HYDROCHLORIDUM TRIHYDRICU [Concomitant]
     Indication: PRODUCT USED FOR UNKNOWN INDICATION
  9. DETRUSITOL [Concomitant]
     Active Substance: TOLTERODINE TARTRATE
     Indication: PRODUCT USED FOR UNKNOWN INDICATION
  10. MOVICOL [Concomitant]
     Active Substance: POLYETHYLENE GLYCOL 3350\POTASSIUM CHLORIDE\SODIUM BICARBONATE\SODIUM CHLORIDE
     Indication: PRODUCT USED FOR UNKNOWN INDICATION
  11. XYREM [Concomitant]
     Active Substance: SODIUM OXYBATE
     Indication: PRODUCT USED FOR UNKNOWN INDICATION
  12. DUODOPA [Suspect]
     Active Substance: CARBIDOPA\LEVODOPA
     Indication: PARKINSON^S DISEASE
     Dosage: MORNING DOSE 8.0ML, CONTINUOUS RATE DAY 5.2ML/H, EXTRA DOSE 1.5ML, 16H THERAPY
     Route: 050
     Dates: start: 20170320

REACTIONS (12)
  - Muscular weakness [Not Recovered/Not Resolved]
  - Urinary retention [Unknown]
  - Back pain [Unknown]
  - Fear of falling [Unknown]
  - Paraplegia [Not Recovered/Not Resolved]
  - Gait disturbance [Unknown]
  - Intervertebral disc protrusion [Unknown]
  - Glucose tolerance impaired [Unknown]
  - Polyneuropathy [Unknown]
  - Blood urine present [Unknown]
  - Urinary incontinence [Unknown]
  - Insomnia [Unknown]

NARRATIVE: CASE EVENT DATE: 2017
